FAERS Safety Report 10043996 (Version 1)
Quarter: 2014Q1

REPORT INFORMATION
  Report Type: Spontaneous
  Country: US (occurrence: US)
  Receive Date: 20140328
  Receipt Date: 20140328
  Transmission Date: 20141002
  Serious: No
  Sender: FDA-Public Use
  Company Number: US-MYLANLABS-2013S1014453

PATIENT
  Age: 53 Year
  Sex: Female

DRUGS (8)
  1. EMSAM (SELEGILINE TRANSDERMAL SYSTEM) [Suspect]
     Indication: DEPRESSION
     Dosage: CHANGES Q DAY
     Route: 062
     Dates: start: 201306
  2. FENTANYL TRANSDERMAL SYSTEM [Suspect]
     Indication: PAIN
     Dosage: CHANGES Q 72HR
     Route: 062
     Dates: start: 201306
  3. CLONAZEPAM [Concomitant]
     Dosage: 5 TIMES DAILY
     Route: 048
  4. SEROQUEL [Concomitant]
     Route: 048
  5. B VITAMIN COMP /00003501/ [Concomitant]
     Route: 048
  6. LORATADINE [Concomitant]
     Indication: HYPERSENSITIVITY
     Route: 048
  7. PROVIGIL /01265601/ [Concomitant]
     Indication: FATIGUE
     Route: 048
  8. MVI [Concomitant]
     Route: 048

REACTIONS (3)
  - Tremor [Not Recovered/Not Resolved]
  - Nausea [Not Recovered/Not Resolved]
  - Depression [Not Recovered/Not Resolved]
